FAERS Safety Report 9942270 (Version 2)
Quarter: 2014Q1

REPORT INFORMATION
  Report Type: Spontaneous
  Country: PR (occurrence: PR)
  Receive Date: 20140303
  Receipt Date: 20140303
  Transmission Date: 20141002
  Serious: No
  Sender: FDA-Public Use
  Company Number: PR-ABBVIE-12P-131-1003158-00

PATIENT
  Age: 46 Year
  Sex: Male

DRUGS (8)
  1. HUMIRA [Suspect]
     Indication: RHEUMATOID ARTHRITIS
     Route: 058
     Dates: start: 2009, end: 201211
  2. HUMIRA [Suspect]
     Indication: PSORIASIS
  3. TOPICAL CREAMS [Concomitant]
     Indication: PSORIASIS
     Route: 061
  4. HYZAAR [Concomitant]
     Indication: HYPERTENSION
     Dosage: 50/12.5
     Route: 048
     Dates: start: 2003
  5. RELAFEN [Concomitant]
     Indication: INTERVERTEBRAL DISC PROTRUSION
     Dosage: 1 BID PRN
     Dates: start: 2005
  6. NEURONTIN [Concomitant]
     Dosage: 1 BID PRN
     Route: 048
     Dates: start: 2005
  7. COLCHYIS [Concomitant]
     Indication: GOUT
     Dosage: 1 PER DAY PRN
     Route: 048
     Dates: start: 2007
  8. ALLOPURINOL [Concomitant]
     Indication: GOUT
     Dosage: 1 DAILY PRN
     Dates: start: 2007

REACTIONS (3)
  - Injection site inflammation [Recovered/Resolved with Sequelae]
  - Infection [Unknown]
  - Psoriasis [Not Recovered/Not Resolved]
